FAERS Safety Report 10424257 (Version 6)
Quarter: 2017Q1

REPORT INFORMATION
  Report Type: Spontaneous
  Country: US (occurrence: US)
  Receive Date: 20140902
  Receipt Date: 20170113
  Transmission Date: 20170428
  Serious: No
  Sender: FDA-Public Use
  Company Number: US-PFIZER INC-2014240924

PATIENT
  Age: 64 Year
  Sex: Female
  Weight: 89 kg

DRUGS (34)
  1. HYGROTON [Concomitant]
     Active Substance: CHLORTHALIDONE
     Dosage: 25 MG, DAILY (WITH BREAKFAST)
     Route: 048
  2. THERAGRAN [Concomitant]
     Active Substance: VITAMINS
     Dosage: 1 DF, 1X/DAY
     Route: 048
  3. BUSPAR [Concomitant]
     Active Substance: BUSPIRONE HYDROCHLORIDE
     Dosage: 15 MG, 3X/DAY
  4. LOTRISONE [Concomitant]
     Active Substance: BETAMETHASONE DIPROPIONATE\CLOTRIMAZOLE
     Dosage: APPLY TOPICALLY 2 (TWO) TIMES A DAY
     Route: 061
  5. VITAMIN D3 [Concomitant]
     Active Substance: CHOLECALCIFEROL
     Dosage: 1000 IU, 1X/DAY
     Route: 048
  6. OXISTAT [Concomitant]
     Active Substance: OXICONAZOLE NITRATE
     Dosage: APPLY TOPICALLY 2 (TWO) TIMES A DAY
     Route: 061
  7. ZANAFLEX [Concomitant]
     Active Substance: TIZANIDINE HYDROCHLORIDE
     Dosage: 4 MG, 2X/DAY
     Route: 048
  8. MECLIZINE [Concomitant]
     Active Substance: MECLIZINE HYDROCHLORIDE
     Dosage: UNK
  9. ATENOLOL. [Concomitant]
     Active Substance: ATENOLOL
     Indication: HYPERTENSION
     Dosage: UNK
  10. CHLORTHALIDONE. [Concomitant]
     Active Substance: CHLORTHALIDONE
     Dosage: UNK
  11. LYRICA [Suspect]
     Active Substance: PREGABALIN
     Indication: MYALGIA
     Dosage: 50 MG, 3X/DAY
     Route: 048
     Dates: start: 20160108
  12. COENZYME Q10 [Concomitant]
     Active Substance: UBIDECARENONE
     Dosage: 10 MG, 1X/DAY
     Route: 048
  13. LYRICA [Suspect]
     Active Substance: PREGABALIN
     Indication: MYOSITIS
     Dosage: 50 MG, 3X/DAY
     Route: 048
     Dates: start: 20160825
  14. LYRICA [Suspect]
     Active Substance: PREGABALIN
     Dosage: 50 MG, 3X/DAY
     Route: 048
     Dates: start: 20161201
  15. ZYLOPRIM [Concomitant]
     Active Substance: ALLOPURINOL
     Dosage: 100 MG, 2X/DAY
     Route: 048
  16. ASPIRIN. [Concomitant]
     Active Substance: ASPIRIN
     Dosage: 325 MG, 1X/DAY
     Route: 048
  17. TENORMIN [Concomitant]
     Active Substance: ATENOLOL
     Dosage: 50 MG, 1X/DAY
     Route: 048
  18. PHOSLO [Concomitant]
     Active Substance: CALCIUM ACETATE
     Dosage: 1334 MG, 1X/DAY
     Route: 048
  19. NAPROSYN [Concomitant]
     Active Substance: NAPROXEN
     Dosage: 500 MG, 2X/DAY
     Route: 048
  20. LYRICA [Suspect]
     Active Substance: PREGABALIN
     Dosage: UNK (3-4 TIMES A DAY )
  21. LIDEX [Concomitant]
     Active Substance: FLUOCINONIDE
     Dosage: 0.05% TOPICAL SOLUTION, APPLY TOPICALLY 2 (TWO) TIMES A DAY
     Route: 061
  22. FLONASE [Concomitant]
     Active Substance: FLUTICASONE PROPIONATE
     Dosage: 50MCG/ACTUATION NASAL SPRAY, 1 SPRAY BY EACH NASAL ROUTE ONE (1) TIME A DAY
     Route: 045
  23. VITAMIN A [Concomitant]
     Active Substance: VITAMIN A
     Dosage: 1 DF, 1X/DAY
     Route: 048
  24. NEXIUM [Concomitant]
     Active Substance: ESOMEPRAZOLE MAGNESIUM
     Dosage: 40 MG, 1X/DAY
     Route: 048
  25. NAPROXEN. [Concomitant]
     Active Substance: NAPROXEN
     Dosage: UNK
  26. ANTIVERT [Concomitant]
     Active Substance: MECLIZINE HYDROCHLORIDE
     Dosage: 25 MG, AS NEEDED (3 TIMES A DAY)
     Route: 048
  27. PRAVACHOL [Concomitant]
     Active Substance: PRAVASTATIN SODIUM
     Dosage: 20 MG, 1X/DAY
     Route: 048
  28. TIZANIDINE. [Concomitant]
     Active Substance: TIZANIDINE
     Dosage: UNK
  29. LYRICA [Suspect]
     Active Substance: PREGABALIN
     Indication: FIBROMYALGIA
     Dosage: 50 MG, 3X/DAY
     Route: 048
     Dates: start: 20150120
  30. STROMECTOL [Concomitant]
     Active Substance: IVERMECTIN
     Dosage: TAKE 3 MG BY MOUTH ONCE, TAKE 5 MG BY MOUTH TODAY, THEN REPEAT IN ONE WEEK
     Route: 048
  31. VITAMIN E, DL, ACETATE [Concomitant]
     Dosage: 1000 IU, 1X/DAY
     Route: 048
  32. ALLOPURINOL. [Concomitant]
     Active Substance: ALLOPURINOL
     Dosage: UNK
  33. BUSPIRONE HCL [Concomitant]
     Active Substance: BUSPIRONE HYDROCHLORIDE
     Dosage: UNK
  34. PRAVASTATIN. [Concomitant]
     Active Substance: PRAVASTATIN
     Dosage: UNK

REACTIONS (7)
  - Neck pain [Unknown]
  - Product use issue [Unknown]
  - Arthralgia [Unknown]
  - Myalgia [Unknown]
  - Headache [Unknown]
  - Gait disturbance [Unknown]
  - Intentional product use issue [Unknown]
